FAERS Safety Report 5994210-X (Version None)
Quarter: 2008Q4

REPORT INFORMATION
  Report Type: 
  Country: None (occurrence: None)
  Receive Date: 20081212
  Receipt Date: 20080903
  Transmission Date: 20090506
  Serious: No
  Sender: FDA-Public Use
  Company Number: US-ABBOTT-08P-163-0474114-00

PATIENT
  Sex: Female
  Weight: 88.53 kg

DRUGS (10)
  1. HUMIRA [Suspect]
     Indication: RHEUMATOID ARTHRITIS
     Route: 058
     Dates: start: 20080601
  2. ESTRADIOL [Concomitant]
     Indication: HYSTERECTOMY
     Route: 048
     Dates: start: 19920101
  3. LANSOPRAZOLE [Concomitant]
     Indication: GASTROOESOPHAGEAL REFLUX DISEASE
     Route: 048
     Dates: start: 20080601
  4. ROSUVASTATIN [Concomitant]
     Indication: BLOOD CHOLESTEROL INCREASED
     Route: 048
     Dates: start: 20060101
  5. CYCLOBENZAPRINE HCL [Concomitant]
     Indication: RHEUMATOID ARTHRITIS
     Route: 048
     Dates: start: 19920101
  6. POTASSIUM CHLORIDE [Concomitant]
     Indication: MINERAL SUPPLEMENTATION
     Route: 048
     Dates: start: 20020101
  7. BUMETANIDE [Concomitant]
     Indication: HYPERTENSION
     Route: 048
     Dates: start: 20080901
  8. MONTELUKAST SODIUM [Concomitant]
     Indication: ASTHMA
     Route: 048
     Dates: start: 19980101
  9. LEVOTHYROXINE SODIUM [Concomitant]
     Indication: HYPOTHYROIDISM
     Route: 048
     Dates: start: 19720101
  10. OSTEO BIFLEX [Concomitant]
     Indication: RHEUMATOID ARTHRITIS
     Dosage: 2 PILLS
     Route: 048
     Dates: start: 20070101

REACTIONS (1)
  - JOINT SWELLING [None]
